FAERS Safety Report 6822120-4 (Version None)
Quarter: 2010Q3

REPORT INFORMATION
  Report Type: 
  Country: None (occurrence: None)
  Receive Date: 20100706
  Receipt Date: 20100622
  Transmission Date: 20110219
  Serious: Yes (Hospitalization)
  Sender: FDA-Public Use
  Company Number: PAR_01682_2007

PATIENT
  Age: 20 Year
  Sex: Female
  Weight: 40 kg

DRUGS (6)
  1. IBUPROFEN [Suspect]
     Indication: TOOTHACHE
     Dosage: 80MG/KG; QD, ORAL
     Route: 048
  2. ACETAMINOPHEN [Suspect]
     Indication: TOOTHACHE
     Dosage: 225 MG/KG, QD, ORAL
     Route: 048
  3. CO-CODAMOL (CODINE PHOSPHATE PARACETAMOL) [Suspect]
     Indication: TOOTHACHE
     Dosage: DF
  4. ADRENALINE /00003901/ (EPINEPHARINE) [Concomitant]
  5. BUPIVACAINE (BUPIVACAINE) [Concomitant]
  6. LIGNOCAINE HYDROCHLORIDE (LIDOCANE HYDROCHLORIDE) [Concomitant]

REACTIONS (2)
  - MULTIPLE DRUG OVERDOSE ACCIDENTAL [None]
  - THERAPEUTIC AGENT TOXICITY [None]
